FAERS Safety Report 9583331 (Version 1)
Quarter: 2013Q4

REPORT INFORMATION
  Report Type: Spontaneous
  Country: US (occurrence: US)
  Receive Date: 20131002
  Receipt Date: 20131002
  Transmission Date: 20140711
  Serious: Yes (Other)
  Sender: FDA-Public Use
  Company Number: US-AMGEN-USASP2013046587

PATIENT
  Age: 56 Year
  Sex: Female

DRUGS (1)
  1. ENBREL [Suspect]
     Indication: RHEUMATOID ARTHRITIS
     Dosage: 50 MG, QWK
     Route: 058
     Dates: start: 20130610

REACTIONS (7)
  - Urinary tract infection [Unknown]
  - Rheumatoid arthritis [Unknown]
  - Pain [Unknown]
  - Headache [Unknown]
  - Sinusitis [Unknown]
  - Injection site erythema [Unknown]
  - Injection site rash [Unknown]
